FAERS Safety Report 18296461 (Version 1)
Quarter: 2020Q3

REPORT INFORMATION
  Report Type: Spontaneous
  Country: JP (occurrence: JP)
  Receive Date: 20200922
  Receipt Date: 20200922
  Transmission Date: 20201103
  Serious: Yes (Death)
  Sender: FDA-Public Use
  Company Number: JP-ASTRAZENECA-2020SF16708

PATIENT
  Age: 100 Year
  Sex: Male

DRUGS (1)
  1. BREZTRI [Suspect]
     Active Substance: BUDESONIDE\FORMOTEROL\GLYCOPYRRONIUM
     Dosage: DOSE UNKNOWN
     Route: 055
     Dates: start: 201909, end: 202008

REACTIONS (4)
  - Aspiration [Unknown]
  - Asthenia [Unknown]
  - Death [Fatal]
  - Eating disorder symptom [Unknown]
